FAERS Safety Report 9863868 (Version 2)
Quarter: 2014Q1

REPORT INFORMATION
  Report Type: Spontaneous
  Country: JP (occurrence: JP)
  Receive Date: 20140203
  Receipt Date: 20140219
  Transmission Date: 20141002
  Serious: Yes (Hospitalization)
  Sender: FDA-Public Use
  Company Number: JP-VIIV HEALTHCARE LIMITED-B0952758A

PATIENT
  Age: 30 Year
  Sex: Male

DRUGS (7)
  1. COMBIVIR [Suspect]
     Indication: HIV INFECTION
     Dosage: 1IUAX TWICE PER DAY
     Route: 048
     Dates: start: 20121126, end: 20130206
  2. EPZICOM [Suspect]
     Indication: HIV INFECTION
     Dosage: 1IUAX PER DAY
     Route: 048
     Dates: start: 20121115, end: 20121115
  3. ISENTRESS [Concomitant]
     Indication: HIV INFECTION
     Dosage: 400MG TWICE PER DAY
     Route: 048
     Dates: start: 20121126
  4. NOVORAPID [Concomitant]
     Indication: DIABETES MELLITUS
     Route: 058
  5. ALLEGRA [Concomitant]
     Indication: DRUG ERUPTION
     Dosage: 60MG TWICE PER DAY
     Route: 048
     Dates: start: 20121015, end: 20121205
  6. REYATAZ [Concomitant]
     Indication: HIV INFECTION
     Route: 048
     Dates: start: 20121115
  7. NORVIR [Concomitant]
     Indication: HIV INFECTION
     Route: 048
     Dates: start: 20121115

REACTIONS (3)
  - Aplasia pure red cell [Recovering/Resolving]
  - Neutropenia [Recovered/Resolved]
  - Rash [Recovered/Resolved]
